FAERS Safety Report 5403698-4 (Version None)
Quarter: 2007Q3

REPORT INFORMATION
  Report Type: 
  Country: None (occurrence: None)
  Receive Date: 20070713
  Receipt Date: 20070405
  Transmission Date: 20080115
  Serious: No
  Sender: FDA-Public Use
  Company Number: REM_00347_2007

PATIENT
  Age: 64 Year
  Sex: Female
  Weight: 93.6 kg

DRUGS (16)
  1. REMODULIN [Suspect]
     Indication: PULMONARY HYPERTENSION
     Dosage: 82 NG/KG/MIN (0.082 UG/KG,1 IN 1 MIN),INTRAVENOUS
     Route: 042
     Dates: start: 20050517
  2. PEPCID COMPLETE (FAMOTIDINE) [Concomitant]
  3. ZYLET [Concomitant]
  4. DAILY MULTIVITAMIN (DAILY MULTIVITAMIN) [Concomitant]
  5. REVATIO [Concomitant]
  6. IMODIUM /00384302/ (LOPERAMIDE HYDROCHLORIDE) [Concomitant]
  7. KLOR-CON [Concomitant]
  8. COUMADIN [Concomitant]
  9. INEXIUM /01479302/ (ESOMEPRAZOLE MAGNESIUM) [Concomitant]
  10. CLARITIN /00917501/ (LORATADINE) [Concomitant]
  11. NORVASC [Concomitant]
  12. ACETAMIN (PARACETAMOL) [Concomitant]
  13. LASIX [Concomitant]
  14. NASOCORT AQ (TRIAMCINOLONE) [Concomitant]
  15. VASOTEC /00574902/ (ENALAPRIL MALEATE) [Concomitant]
  16. ICAR (IRON PENTACARBONYL) [Concomitant]

REACTIONS (1)
  - BACTERIAL INFECTION [None]
